FAERS Safety Report 5016373-5 (Version None)
Quarter: 2006Q2

REPORT INFORMATION
  Report Type: 
  Country: None (occurrence: None)
  Receive Date: 20060420
  Receipt Date: 20051227
  Transmission Date: 20061013
  Serious: No
  Sender: FDA-Public Use
  Company Number: 2006005067

PATIENT
  Age: 27 Year
  Sex: Female
  Weight: 49.8957 kg

DRUGS (6)
  1. SOMAVERT [Suspect]
     Indication: ILL-DEFINED DISORDER
     Dosage: 10 MG
     Dates: start: 20051115, end: 20051223
  2. ROCALTROL [Concomitant]
  3. PARLODEL [Concomitant]
  4. PROPYLTHIOURACIL [Concomitant]
  5. ALLEGRA [Concomitant]
  6. ALLERGY MEDICATION (ALLERGY MEDICATION) [Concomitant]

REACTIONS (6)
  - ARTHRALGIA [None]
  - BODY TEMPERATURE INCREASED [None]
  - CHILLS [None]
  - INJECTION SITE DISCOLOURATION [None]
  - INJECTION SITE ERYTHEMA [None]
  - INJECTION SITE PRURITUS [None]
